FAERS Safety Report 11998060 (Version 1)
Quarter: 2016Q1

REPORT INFORMATION
  Report Type: Spontaneous
  Country: US (occurrence: None)
  Receive Date: 20160202
  Receipt Date: 20160202
  Transmission Date: 20160526
  Serious: Yes (Other)
  Sender: FDA-Public Use
  Company Number: None

PATIENT
  Sex: Female
  Weight: 88.45 kg

DRUGS (1)
  1. XOLAIR [Suspect]
     Active Substance: OMALIZUMAB
     Indication: IDIOPATHIC URTICARIA
     Dosage: ZOLAIR 150 MG VIAL EVERY 4 WEEKS SUBCUTANEOUS??SHIPPED 2/2/16
     Route: 058
     Dates: start: 20160202

REACTIONS (2)
  - Palpitations [None]
  - Insomnia [None]
